FAERS Safety Report 9193843 (Version 1)
Quarter: 2013Q1

REPORT INFORMATION
  Report Type: Spontaneous
  Country: US (occurrence: US)
  Receive Date: 20130327
  Receipt Date: 20130327
  Transmission Date: 20140127
  Serious: Yes (Other)
  Sender: FDA-Public Use
  Company Number: US-BAYER-2013-034569

PATIENT
  Age: 68 Year
  Sex: Female
  Weight: 64 kg

DRUGS (13)
  1. BAYER ASPIRIN REGIMEN ADULT LOW STRENGTH [Suspect]
     Dosage: 81 MG, QD
     Route: 048
  2. JAKAFI [Suspect]
     Indication: MYELOFIBROSIS
     Dosage: 20 MG, BID
     Route: 048
     Dates: start: 2011
  3. VITAMIN C [Concomitant]
     Dosage: 500 MG, UNK
  4. ATENOLOL [Concomitant]
     Dosage: 25 MG, UNK
  5. ZYRTEC [Concomitant]
     Dosage: 10 MG, UNK
  6. FEBUXOSTAT [Concomitant]
     Dosage: 40 MG, UNK
  7. VALIUM [Concomitant]
     Dosage: 10 MG, UNK
  8. GRAPE SEED EXTRACT [Concomitant]
     Dosage: 100 MG, UNK
  9. VICOPROFEN [Concomitant]
     Dosage: 7.5-200 MG
  10. PROBIOTICS [Concomitant]
  11. COMPAZINE [Concomitant]
     Dosage: 10 MG, UNK
  12. PSYLLIUM [Concomitant]
     Dosage: UNK
  13. VITAMIN E [Concomitant]
     Dosage: 400 UT

REACTIONS (21)
  - Decreased appetite [Recovered/Resolved]
  - Depression [None]
  - Anaemia [None]
  - Fatigue [None]
  - Contusion [None]
  - Malaise [None]
  - Cough [None]
  - Upper respiratory tract congestion [None]
  - Insomnia [None]
  - Productive cough [None]
  - Constipation [None]
  - Dyspnoea exertional [None]
  - Oedema peripheral [None]
  - Anxiety [None]
  - Pyrexia [None]
  - Pain [None]
  - Splenomegaly [None]
  - Asthenia [None]
  - Dizziness [Recovered/Resolved]
  - Fall [Recovered/Resolved]
  - Injury [None]
